FAERS Safety Report 9850864 (Version 2)
Quarter: 2014Q1

REPORT INFORMATION
  Report Type: Spontaneous
  Country: DE (occurrence: DE)
  Receive Date: 20140128
  Receipt Date: 20140128
  Transmission Date: 20141002
  Serious: Yes (Death, Other)
  Sender: FDA-Public Use
  Company Number: DE-PFIZER INC-K200300177

PATIENT
  Age: 28 Year
  Sex: Male

DRUGS (1)
  1. KETALAR [Suspect]
     Indication: LIBIDO DISORDER
     Dosage: SINGLE
     Route: 042

REACTIONS (16)
  - Drug abuse [Fatal]
  - Asphyxia [Fatal]
  - Paraphilia [Fatal]
  - Anaesthesia [Fatal]
  - Poisoning [Fatal]
  - Respiratory depression [Fatal]
  - Brain compression [Fatal]
  - Brain oedema [Fatal]
  - Salivary hypersecretion [Fatal]
  - Conjunctival disorder [Fatal]
  - Paralysis [Fatal]
  - Hepatocellular injury [Fatal]
  - Pulmonary oedema [Fatal]
  - Haemorrhage [Fatal]
  - Haemorrhage [Fatal]
  - Traumatic lung injury [Unknown]
